FAERS Safety Report 8266145-3 (Version None)
Quarter: 2012Q2

REPORT INFORMATION
  Report Type: 
  Country: None (occurrence: None)
  Receive Date: 20120406
  Receipt Date: 20120403
  Transmission Date: 20120825
  Serious: Yes (Hospitalization, Other)
  Sender: FDA-Public Use
  Company Number: PHEH2009US07540

PATIENT
  Sex: Female

DRUGS (17)
  1. LORTAB [Concomitant]
     Dosage: UNK
  2. AREDIA [Suspect]
  3. ZOMETA [Suspect]
     Route: 042
  4. ATENOLOL [Concomitant]
     Dosage: 25 MG, QHS
  5. CODEINE SULFATE [Concomitant]
  6. XANAX [Concomitant]
     Dosage: 0.25 MG, BID
  7. LEVAQUIN [Concomitant]
  8. AMIODARONE [Concomitant]
     Dosage: 200 MG, DAILY
  9. EFFEXOR [Concomitant]
     Dosage: 75 MG, DAILY
  10. ATIVAN [Concomitant]
     Dosage: 2 MG, AT BED TIME
  11. METHADONE HCL [Concomitant]
     Dosage: 30 MG, TID
  12. HYDROCODONE BITARTRATE [Concomitant]
  13. ASPIRIN [Concomitant]
  14. BUSPAR [Concomitant]
  15. PACERONE [Concomitant]
  16. SENNA [Concomitant]
  17. CHEMOTHERAPEUTICS [Concomitant]

REACTIONS (47)
  - METASTASES TO LIVER [None]
  - ATRIAL FIBRILLATION [None]
  - MITRAL VALVE PROLAPSE [None]
  - ABDOMINAL PAIN [None]
  - MUCOSAL INFLAMMATION [None]
  - RASH ERYTHEMATOUS [None]
  - PAIN [None]
  - ALTERED STATE OF CONSCIOUSNESS [None]
  - AORTIC VALVE INCOMPETENCE [None]
  - CELLULITIS [None]
  - DYSPNOEA EXERTIONAL [None]
  - IMPAIRED GASTRIC EMPTYING [None]
  - VENTRICULAR TACHYCARDIA [None]
  - PHLEBITIS [None]
  - ATELECTASIS [None]
  - RESPIRATORY DISTRESS [None]
  - HYPOKALAEMIA [None]
  - GAIT DISTURBANCE [None]
  - BREAST CANCER METASTATIC [None]
  - METASTASES TO BONE [None]
  - BASEDOW'S DISEASE [None]
  - TRICUSPID VALVE INCOMPETENCE [None]
  - METASTASES TO SPINE [None]
  - MOUTH ULCERATION [None]
  - ANXIETY [None]
  - LUNG NEOPLASM [None]
  - DYSURIA [None]
  - OSTEONECROSIS OF JAW [None]
  - HYPERTENSION [None]
  - DEPRESSION [None]
  - HILAR LYMPHADENOPATHY [None]
  - SCAR [None]
  - PULMONARY VALVE INCOMPETENCE [None]
  - METASTASES TO LUNG [None]
  - PARALYSIS [None]
  - PRESYNCOPE [None]
  - BACK PAIN [None]
  - DIZZINESS [None]
  - GENERAL PHYSICAL HEALTH DETERIORATION [None]
  - ANHEDONIA [None]
  - OEDEMA PERIPHERAL [None]
  - THROMBOCYTOPENIA [None]
  - MENTAL STATUS CHANGES [None]
  - MITRAL VALVE INCOMPETENCE [None]
  - HYPOTHYROIDISM [None]
  - WEIGHT INCREASED [None]
  - PALPITATIONS [None]
